FAERS Safety Report 24448543 (Version 2)
Quarter: 2025Q3

REPORT INFORMATION
  Report Type: Report from Study
  Country: US (occurrence: US)
  Receive Date: 20241017
  Receipt Date: 20250809
  Transmission Date: 20251020
  Serious: Yes (Other)
  Sender: ALEXION PHARMACEUTICALS
  Company Number: US-AstraZeneca-CH-00709552A

PATIENT
  Sex: Male

DRUGS (1)
  1. CALQUENCE [Suspect]
     Active Substance: ACALABRUTINIB
     Indication: Chronic lymphocytic leukaemia
     Dosage: 100 MILLIGRAM, BID
     Dates: start: 202202

REACTIONS (6)
  - Gastritis [Unknown]
  - Anorectal polyp [Unknown]
  - Hiatus hernia [Unknown]
  - Flatulence [Unknown]
  - Frequent bowel movements [Unknown]
  - Product dose omission in error [Unknown]
